FAERS Safety Report 7655094-7 (Version None)
Quarter: 2011Q3

REPORT INFORMATION
  Report Type: 
  Country: None (occurrence: None)
  Receive Date: 20110804
  Receipt Date: 20110803
  Transmission Date: 20111222
  Serious: Yes (Other)
  Sender: FDA-Public Use
  Company Number: US-ROXANE LABORATORIES, INC.-2011-RO-01101RO

PATIENT
  Sex: Male

DRUGS (1)
  1. PROPRANOLOL [Suspect]
     Indication: HAEMANGIOMA
     Dosage: 40 MG
     Route: 048
     Dates: start: 20110723

REACTIONS (2)
  - CONVULSION [None]
  - HYPOGLYCAEMIA [None]
